FAERS Safety Report 24700851 (Version 2)
Quarter: 2024Q4

REPORT INFORMATION
  Report Type: Spontaneous
  Country: GB (occurrence: GB)
  Receive Date: 20241205
  Receipt Date: 20241206
  Transmission Date: 20250114
  Serious: Yes (Death, Hospitalization, Other)
  Sender: JUBILANT
  Company Number: None

PATIENT
  Age: 21 Year
  Sex: Male
  Weight: 120 kg

DRUGS (7)
  1. QUETIAPINE FUMARATE [Suspect]
     Active Substance: QUETIAPINE FUMARATE
     Indication: Obsessive-compulsive disorder
     Dosage: 800 MG, ONCE PER DAY
     Route: 048
     Dates: start: 20091101, end: 20110705
  2. PREGABALIN [Suspect]
     Active Substance: PREGABALIN
     Indication: Obsessive-compulsive disorder
     Dosage: 450 MG, ONCE PER DAY (225 MILLIGRAM, BID)
     Route: 048
     Dates: start: 20091101, end: 20110705
  3. SEROQUEL [Suspect]
     Active Substance: QUETIAPINE FUMARATE
     Indication: Obsessive-compulsive disorder
     Dosage: 800 MG, ONCE PER DAY
     Route: 048
     Dates: start: 20091101, end: 20110705
  4. SEROQUEL [Suspect]
     Active Substance: QUETIAPINE FUMARATE
     Indication: Psychotic disorder
  5. LYRICA [Suspect]
     Active Substance: PREGABALIN
     Indication: Obsessive-compulsive disorder
     Dosage: 450 MG, ONCE PER DAY (225 MILLIGRAM, BID)
     Route: 048
     Dates: start: 20091101, end: 20110705
  6. LYRICA [Suspect]
     Active Substance: PREGABALIN
     Indication: Anxiety
  7. FLUOXETINE [Suspect]
     Active Substance: FLUOXETINE HYDROCHLORIDE
     Indication: Obsessive-compulsive disorder
     Dosage: 60 MG, ONCE PER DAY
     Route: 048
     Dates: start: 20091101, end: 20110705

REACTIONS (9)
  - Pancreatitis acute [Fatal]
  - Pancreatitis necrotising [Fatal]
  - Rhabdomyolysis [Fatal]
  - Multiple organ dysfunction syndrome [Not Recovered/Not Resolved]
  - Septic shock [Unknown]
  - Hyperpyrexia [Unknown]
  - Abdominal pain [Unknown]
  - Pyrexia [Unknown]
  - Vomiting [Unknown]

NARRATIVE: CASE EVENT DATE: 20110101
